FAERS Safety Report 8565267-7 (Version None)
Quarter: 2012Q3

REPORT INFORMATION
  Report Type: 
  Country: None (occurrence: None)
  Receive Date: 20120803
  Receipt Date: 20120724
  Transmission Date: 20120928
  Serious: Yes (Disabling)
  Sender: FDA-Public Use
  Company Number: FR-CELGENEUS-056-21880-12072517

PATIENT
  Sex: Male

DRUGS (7)
  1. BORTEZOMIB [Suspect]
     Indication: MULTIPLE MYELOMA
     Route: 065
     Dates: start: 20110110
  2. IBUPROFEN [Concomitant]
     Indication: HEADACHE
     Route: 048
  3. VALACYCLOVIR HYDROCHLORIDE [Concomitant]
     Indication: INFECTION PROPHYLAXIS
     Route: 048
     Dates: start: 20110110, end: 20120718
  4. ASPEGIC 1000 [Concomitant]
     Indication: THROMBOSIS PROPHYLAXIS
     Route: 048
     Dates: start: 20120718, end: 20120718
  5. DEXAMETHASONE [Suspect]
     Indication: MULTIPLE MYELOMA
     Route: 065
     Dates: start: 20110110
  6. REVLIMID [Suspect]
     Indication: MULTIPLE MYELOMA
     Route: 048
     Dates: start: 20110110
  7. REVLIMID [Suspect]
     Route: 048
     Dates: end: 20120716

REACTIONS (1)
  - HEPATITIS ACUTE [None]
